FAERS Safety Report 24297926 (Version 1)
Quarter: 2024Q3

REPORT INFORMATION
  Report Type: Spontaneous
  Country: US (occurrence: US)
  Receive Date: 20240909
  Receipt Date: 20240909
  Transmission Date: 20241017
  Serious: Yes (Death, Hospitalization, Other)
  Sender: TORRENT
  Company Number: US-TORRENT-00013739

PATIENT
  Age: 54 Year
  Sex: Male

DRUGS (2)
  1. NYSTATIN [Suspect]
     Active Substance: NYSTATIN
     Indication: Product used for unknown indication
     Dosage: UNKNOWN
     Route: 065
  2. FILGRASTIM [Suspect]
     Active Substance: FILGRASTIM
     Indication: Product used for unknown indication
     Dosage: UNKNOWN
     Route: 065

REACTIONS (5)
  - Respiratory distress [Fatal]
  - Condition aggravated [Fatal]
  - Non-cirrhotic portal hypertension [Fatal]
  - Portal hypertensive gastropathy [Fatal]
  - Haemophagocytic lymphohistiocytosis [Fatal]
